FAERS Safety Report 15702497 (Version 2)
Quarter: 2020Q1

REPORT INFORMATION
  Report Type: Spontaneous
  Country: US (occurrence: US)
  Receive Date: 20181210
  Receipt Date: 20200323
  Transmission Date: 20200409
  Serious: Yes (Hospitalization)
  Sender: FDA-Public Use
  Company Number: US-BRISTOL-MYERS SQUIBB COMPANY-BMS-2018-115602

PATIENT
  Age: 55 Year
  Sex: Male
  Weight: 68 kg

DRUGS (2)
  1. NIVOLUMAB [Suspect]
     Active Substance: NIVOLUMAB
     Indication: SARCOMA
     Dosage: 240 MG, Q2WK
     Route: 042
     Dates: start: 20181003, end: 20181114
  2. IPILIMUMAB [Suspect]
     Active Substance: IPILIMUMAB
     Indication: SARCOMA
     Dosage: 1 MG/KG, Q6WK
     Route: 042
     Dates: start: 20181003, end: 20181114

REACTIONS (2)
  - Discharge [Unknown]
  - Intentional product use issue [Unknown]

NARRATIVE: CASE EVENT DATE: 20181202
